FAERS Safety Report 6901311-8 (Version None)
Quarter: 2010Q3

REPORT INFORMATION
  Report Type: 
  Country: None (occurrence: None)
  Receive Date: 20100803
  Receipt Date: 20080115
  Transmission Date: 20110219
  Serious: No
  Sender: FDA-Public Use
  Company Number: US-PFIZER INC-2008006025

PATIENT

DRUGS (2)
  1. LYRICA [Suspect]
     Indication: SYNOVIAL CYST
  2. ADVIL LIQUI-GELS [Suspect]

REACTIONS (1)
  - DRUG INEFFECTIVE [None]
